FAERS Safety Report 12780043 (Version 1)
Quarter: 2016Q3

REPORT INFORMATION
  Report Type: Report from Study
  Country: NL (occurrence: NL)
  Receive Date: 20160926
  Receipt Date: 20160926
  Transmission Date: 20161109
  Serious: Yes (Other)
  Sender: FDA-Public Use
  Company Number: NL-MYLANLABS-2016M1040690

PATIENT

DRUGS (2)
  1. MAGNESIUM [Suspect]
     Active Substance: MAGNESIUM
     Indication: PRODUCT USED FOR UNKNOWN INDICATION
     Route: 065
  2. NIFEDIPINE. [Suspect]
     Active Substance: NIFEDIPINE
     Indication: PREMATURE RUPTURE OF MEMBRANES
     Dosage: ONE 20MG TABLET EVERY 6 HOURS; SLOW RELEASE
     Route: 048

REACTIONS (3)
  - Maternal exposure during pregnancy [Unknown]
  - Uterine infection [Unknown]
  - Premature delivery [Unknown]
